FAERS Safety Report 20561403 (Version 1)
Quarter: 2022Q1

REPORT INFORMATION
  Report Type: Spontaneous
  Country: MX (occurrence: MX)
  Receive Date: 20220307
  Receipt Date: 20220307
  Transmission Date: 20220423
  Serious: Yes (Other)
  Sender: FDA-Public Use
  Company Number: MX-NOVARTISPH-NVSC2019MX002108

PATIENT
  Age: 81 Year
  Sex: Female

DRUGS (1)
  1. SULFAMETHOXAZOLE\TRIMETHOPRIM [Suspect]
     Active Substance: SULFAMETHOXAZOLE\TRIMETHOPRIM
     Indication: Urinary tract infection
     Dosage: 800/160 MG, QD
     Route: 065

REACTIONS (5)
  - Hyperkalaemia [Unknown]
  - Blood creatinine increased [Unknown]
  - Asthenia [Unknown]
  - Fatigue [Unknown]
  - Discomfort [Unknown]
